FAERS Safety Report 21075270 (Version 1)
Quarter: 2022Q3

REPORT INFORMATION
  Report Type: Spontaneous
  Country: US (occurrence: None)
  Receive Date: 20220712
  Receipt Date: 20220712
  Transmission Date: 20221027
  Serious: No
  Sender: FDA-Public Use
  Company Number: None

PATIENT
  Age: 26 Year
  Sex: Female

DRUGS (1)
  1. STELARA [Suspect]
     Active Substance: USTEKINUMAB
     Indication: Colitis ulcerative
     Dosage: OTHER FREQUENCY : Q 6WKS;?
     Route: 058
     Dates: start: 202007

REACTIONS (4)
  - Device malfunction [None]
  - Incorrect dose administered by device [None]
  - Needle issue [None]
  - Colitis ulcerative [None]

NARRATIVE: CASE EVENT DATE: 20220615
